FAERS Safety Report 12632928 (Version 2)
Quarter: 2016Q3

REPORT INFORMATION
  Report Type: Spontaneous
  Country: US (occurrence: US)
  Receive Date: 20160808
  Receipt Date: 20160808
  Transmission Date: 20161109
  Serious: No
  Sender: FDA-Public Use
  Company Number: US-BEH-2016057576

PATIENT
  Age: 53 Year
  Sex: Female
  Weight: 65 kg

DRUGS (17)
  1. BACTRIM DS [Concomitant]
     Active Substance: SULFAMETHOXAZOLE\TRIMETHOPRIM
  2. LIDOCAINE. [Concomitant]
     Active Substance: LIDOCAINE
  3. FLUTICASONE PROPIONATE. [Concomitant]
     Active Substance: FLUTICASONE PROPIONATE
  4. MULTIVITAMINS [Concomitant]
     Active Substance: VITAMINS
  5. EPIPEN [Concomitant]
     Active Substance: EPINEPHRINE
  6. FIORINAL [Concomitant]
     Active Substance: ASPIRIN\BUTALBITAL\CAFFEINE
  7. TRAZODONE [Concomitant]
     Active Substance: TRAZODONE HYDROCHLORIDE
  8. HIZENTRA [Suspect]
     Active Substance: HUMAN IMMUNOGLOBULIN G
     Indication: IMMUNODEFICIENCY COMMON VARIABLE
     Route: 058
  9. HIZENTRA [Suspect]
     Active Substance: HUMAN IMMUNOGLOBULIN G
     Indication: HYPOGAMMAGLOBULINAEMIA
     Route: 058
  10. DIPHENHYDRAMINE. [Concomitant]
     Active Substance: DIPHENHYDRAMINE
  11. ALPRAZOLAM. [Concomitant]
     Active Substance: ALPRAZOLAM
  12. PROVIGIL [Concomitant]
     Active Substance: MODAFINIL
  13. MORPHINE SULFATE. [Concomitant]
     Active Substance: MORPHINE SULFATE
  14. PROMETHAZINE [Concomitant]
     Active Substance: PROMETHAZINE\PROMETHAZINE HYDROCHLORIDE
  15. BENZONATATE. [Concomitant]
     Active Substance: BENZONATATE
  16. PREDNISONE. [Concomitant]
     Active Substance: PREDNISONE
  17. ACETAMINOPHEN. [Concomitant]
     Active Substance: ACETAMINOPHEN

REACTIONS (1)
  - Synovial cyst [Unknown]

NARRATIVE: CASE EVENT DATE: 20151201
